FAERS Safety Report 9605232 (Version 5)
Quarter: 2015Q1

REPORT INFORMATION
  Report Type: Report from Study
  Country: CA (occurrence: CA)
  Receive Date: 20131008
  Receipt Date: 20150317
  Transmission Date: 20150721
  Serious: Yes (Other)
  Sender: FDA-Public Use
  Company Number: PHHY2013CA074615

PATIENT
  Age: 52 Year
  Sex: Female

DRUGS (4)
  1. CLONIDINE. [Concomitant]
     Active Substance: CLONIDINE
     Indication: PRODUCT USED FOR UNKNOWN INDICATION
     Dosage: 0.025 MG
     Route: 065
  2. GLEEVEC [Suspect]
     Active Substance: IMATINIB MESYLATE
     Indication: GASTROINTESTINAL STROMAL TUMOUR
     Dosage: 400 MG, QD
     Route: 048
     Dates: start: 20130621
  3. EZETIMIBE. [Concomitant]
     Active Substance: EZETIMIBE
     Indication: PRODUCT USED FOR UNKNOWN INDICATION
     Dosage: 10 MG
     Route: 065
  4. ASA [Concomitant]
     Active Substance: ASPIRIN
     Indication: PRODUCT USED FOR UNKNOWN INDICATION
     Dosage: 81 MG
     Route: 065

REACTIONS (18)
  - Diarrhoea [Not Recovered/Not Resolved]
  - Fatigue [Unknown]
  - Vomiting [Unknown]
  - Depression [Unknown]
  - Dysphonia [Unknown]
  - Dysgeusia [Unknown]
  - Chills [Unknown]
  - Urticaria [Unknown]
  - Insomnia [Unknown]
  - Eye swelling [Unknown]
  - Weight decreased [Unknown]
  - Blister [Unknown]
  - Decreased appetite [Unknown]
  - Ovarian cyst [Unknown]
  - Blood iron decreased [Unknown]
  - Nausea [Unknown]
  - Pruritus [Unknown]
  - Swelling face [Unknown]

NARRATIVE: CASE EVENT DATE: 201306
